FAERS Safety Report 13255912 (Version 2)
Quarter: 2017Q1

REPORT INFORMATION
  Report Type: Report from Study
  Country: GB (occurrence: GB)
  Receive Date: 20170221
  Receipt Date: 20170323
  Transmission Date: 20170428
  Serious: Yes (Other)
  Sender: FDA-Public Use
  Company Number: GB-AMGEN-GBRCT2017025139

PATIENT
  Age: 69 Year
  Sex: Male
  Weight: 108 kg

DRUGS (1)
  1. BLINATUMOMAB [Suspect]
     Active Substance: BLINATUMOMAB
     Indication: B PRECURSOR TYPE ACUTE LEUKAEMIA
     Dosage: UNK
     Route: 042
     Dates: start: 20121214, end: 20130125

REACTIONS (1)
  - Pleomorphic malignant fibrous histiocytoma [Not Recovered/Not Resolved]

NARRATIVE: CASE EVENT DATE: 20160114
